FAERS Safety Report 13069072 (Version 1)
Quarter: 2016Q4

REPORT INFORMATION
  Report Type: Spontaneous
  Country: CN (occurrence: CN)
  Receive Date: 20161228
  Receipt Date: 20161228
  Transmission Date: 20170207
  Serious: Yes (Hospitalization)
  Sender: FDA-Public Use
  Company Number: CN-ASTRAZENECA-2016SF37057

PATIENT
  Age: 38 Year
  Sex: Female

DRUGS (7)
  1. TERBUTALINE SULPHATE [Concomitant]
     Active Substance: TERBUTALINE SULFATE
     Route: 055
     Dates: start: 20141026
  2. AMBROXOL HYDROCHLORIDE [Concomitant]
     Active Substance: AMBROXOL HYDROCHLORIDE
     Route: 065
     Dates: start: 20141026
  3. HEMOCOAGULASE [Concomitant]
     Route: 065
     Dates: start: 20141026
  4. BUDESONIDE. [Concomitant]
     Active Substance: BUDESONIDE
     Route: 055
     Dates: start: 20141026
  5. ETAMSYLATE [Concomitant]
     Active Substance: ETHAMSYLATE
     Route: 065
     Dates: start: 20141026
  6. MEROPENEM. [Suspect]
     Active Substance: MEROPENEM
     Indication: ANTI-INFECTIVE THERAPY
     Route: 042
     Dates: start: 20141028, end: 20141101
  7. PIPERACILLIN AND TAZOBACTAM [Concomitant]
     Active Substance: PIPERACILLIN SODIUM\TAZOBACTAM SODIUM
     Indication: ANTI-INFECTIVE THERAPY
     Route: 042
     Dates: start: 20141026, end: 20141027

REACTIONS (1)
  - Seizure [Recovered/Resolved]

NARRATIVE: CASE EVENT DATE: 20141031
